FAERS Safety Report 9374327 (Version 1)
Quarter: 2013Q2

REPORT INFORMATION
  Report Type: Spontaneous
  Country: US (occurrence: US)
  Receive Date: 20130628
  Receipt Date: 20130628
  Transmission Date: 20140414
  Serious: No
  Sender: FDA-Public Use
  Company Number: US-PFIZER INC-2013191531

PATIENT
  Sex: 0

DRUGS (1)
  1. XELJANZ [Suspect]
     Indication: ARTHRALGIA
     Dosage: UNK
     Dates: start: 201303

REACTIONS (2)
  - Fatigue [Unknown]
  - Insomnia [Unknown]
